FAERS Safety Report 14169901 (Version 1)
Quarter: 2017Q4

REPORT INFORMATION
  Report Type: Spontaneous
  Country: US (occurrence: US)
  Receive Date: 20171108
  Receipt Date: 20171108
  Transmission Date: 20180321
  Serious: No
  Sender: FDA-Public Use
  Company Number: US-MISSION PHARMACAL COMPANY-2033527

PATIENT
  Age: 40 Year
  Sex: Female

DRUGS (1)
  1. THIOLA [Suspect]
     Active Substance: TIOPRONIN
     Indication: NEPHROLITHIASIS
     Route: 065
     Dates: start: 20150812

REACTIONS (6)
  - Drug dose omission [Unknown]
  - Pulmonary congestion [Unknown]
  - Vomiting [Unknown]
  - Oropharyngeal pain [Unknown]
  - Influenza [Unknown]
  - Nausea [Unknown]
